FAERS Safety Report 25500218 (Version 5)
Quarter: 2025Q3

REPORT INFORMATION
  Report Type: Report from Study
  Country: US (occurrence: US)
  Receive Date: 20250701
  Receipt Date: 20250821
  Transmission Date: 20251021
  Serious: Yes (Hospitalization)
  Sender: ABBVIE
  Company Number: US-ABBVIE-6348573

PATIENT
  Age: 64 Year
  Sex: Male

DRUGS (2)
  1. RINVOQ [Suspect]
     Active Substance: UPADACITINIB
     Indication: Eczema
     Dosage: STRENGTH:15 MG THERAPY END DATE 2025
     Route: 048
     Dates: start: 20250428
  2. RINVOQ [Suspect]
     Active Substance: UPADACITINIB
     Indication: Eczema
     Dosage: STRENGTH:15 MG
     Route: 048
     Dates: start: 20250811

REACTIONS (9)
  - Blood sodium decreased [Recovering/Resolving]
  - Dry skin [Unknown]
  - Epistaxis [Recovered/Resolved]
  - Feeding disorder [Unknown]
  - Syncope [Unknown]
  - Dysphagia [Recovered/Resolved]
  - Nasal disorder [Unknown]
  - Pain [Recovered/Resolved]
  - Angioedema [Recovered/Resolved]

NARRATIVE: CASE EVENT DATE: 20250101
